FAERS Safety Report 4381621-1 (Version None)
Quarter: 2004Q2

REPORT INFORMATION
  Report Type: 
  Country: None (occurrence: None)
  Receive Date: 20040621
  Receipt Date: 20040607
  Transmission Date: 20050107
  Serious: Yes (Hospitalization)
  Sender: FDA-Public Use
  Company Number: SE-ROCHE-369944

PATIENT
  Age: 59 Year
  Sex: Male
  Weight: 88.6 kg

DRUGS (13)
  1. DACLIZUMAB [Suspect]
     Route: 042
     Dates: start: 20040223
  2. DACLIZUMAB [Suspect]
     Route: 042
     Dates: end: 20040419
  3. MYCOPHENOLATE MOFETIL [Suspect]
     Route: 048
     Dates: start: 20040223
  4. CYCLOSPORINE [Suspect]
     Route: 048
     Dates: start: 20040223
  5. PREDNISOLONE [Suspect]
     Route: 048
     Dates: start: 20040223
  6. METOPROLOL SUCCINATE [Concomitant]
     Dosage: START DATE: PRE STUDY.
     Route: 048
  7. CANDESARTAN [Concomitant]
     Route: 048
     Dates: start: 20040229
  8. DILTIAZEMHYDROCHLORID [Concomitant]
     Dosage: START DATE: PRE STUDY.
     Route: 048
  9. FAMOTIDIN [Concomitant]
     Route: 048
     Dates: start: 20040225
  10. VALGANCICLOVIR [Concomitant]
     Indication: DRUG USE FOR UNKNOWN INDICATION
     Route: 048
     Dates: start: 20040223
  11. CALCIUM CARBONATE [Concomitant]
     Dosage: DOSE: ^1ST^
     Route: 048
     Dates: start: 20040226
  12. ENOXAPARIN NATRIUM [Concomitant]
     Route: 058
     Dates: start: 20040511
  13. NYSTATIN [Concomitant]
     Route: 048
     Dates: start: 20040225

REACTIONS (2)
  - BLOOD CREATININE INCREASED [None]
  - RENAL TRANSPLANT [None]
